FAERS Safety Report 8019349-9 (Version None)
Quarter: 2012Q1

REPORT INFORMATION
  Report Type: 
  Country: None (occurrence: None)
  Receive Date: 20120103
  Receipt Date: 20111223
  Transmission Date: 20120608
  Serious: Yes (Hospitalization)
  Sender: FDA-Public Use
  Company Number: US-ACTELION-A-US2011-58876

PATIENT

DRUGS (4)
  1. ISOSORBID [Concomitant]
  2. AMIODARONE HCL [Concomitant]
  3. TRACLEER [Suspect]
     Indication: PULMONARY ARTERIAL HYPERTENSION
     Dosage: UNK
     Route: 048
     Dates: start: 20110525
  4. COUMADIN [Concomitant]

REACTIONS (1)
  - HAEMORRHAGE [None]
